FAERS Safety Report 17565947 (Version 1)
Quarter: 2020Q1

REPORT INFORMATION
  Report Type: Spontaneous
  Country: US (occurrence: US)
  Receive Date: 20200320
  Receipt Date: 20200320
  Transmission Date: 20200409
  Serious: Yes (Hospitalization)
  Sender: FDA-Public Use
  Company Number: US-ROCHE-2566780

PATIENT
  Age: 16 Year
  Sex: Female
  Weight: 54.4 kg

DRUGS (2)
  1. ACTEMRA [Suspect]
     Active Substance: TOCILIZUMAB
     Indication: MALIGNANT FIBROUS HISTIOCYTOMA RECURRENT
     Route: 058
     Dates: start: 201810
  2. SILTUXIMAB [Concomitant]
     Active Substance: SILTUXIMAB
     Indication: MALIGNANT FIBROUS HISTIOCYTOMA RECURRENT
     Route: 042
     Dates: start: 20200214

REACTIONS (9)
  - Unevaluable event [Not Recovered/Not Resolved]
  - Off label use [Unknown]
  - Pyrexia [Not Recovered/Not Resolved]
  - Tracheo-oesophageal fistula [Not Recovered/Not Resolved]
  - Inflammation [Not Recovered/Not Resolved]
  - Interleukin level increased [Unknown]
  - Intentional product use issue [Unknown]
  - Respiratory symptom [Not Recovered/Not Resolved]
  - Pleural effusion [Not Recovered/Not Resolved]
